FAERS Safety Report 13624348 (Version 1)
Quarter: 2017Q2

REPORT INFORMATION
  Report Type: Spontaneous
  Country: US (occurrence: US)
  Receive Date: 20170608
  Receipt Date: 20170608
  Transmission Date: 20170830
  Serious: Yes (Other)
  Sender: FDA-Public Use
  Company Number: US-TORRENT-00002694

PATIENT
  Age: 10 Year
  Sex: Male

DRUGS (2)
  1. METFORMIN [Suspect]
     Active Substance: METFORMIN HYDROCHLORIDE
  2. RISPERIDONE. [Suspect]
     Active Substance: RISPERIDONE

REACTIONS (5)
  - Type I hypersensitivity [Recovered/Resolved]
  - Increased appetite [Unknown]
  - Hyperphagia [Unknown]
  - Weight increased [Unknown]
  - Metabolic syndrome [Unknown]
